FAERS Safety Report 5457672-2 (Version None)
Quarter: 2007Q3

REPORT INFORMATION
  Report Type: 
  Country: None (occurrence: None)
  Receive Date: 20070918
  Receipt Date: 20070702
  Transmission Date: 20080115
  Serious: Yes (Hospitalization)
  Sender: FDA-Public Use
  Company Number: US-ASTRAZENECA-2007UW04796

PATIENT
  Age: 5444 Day
  Sex: Male
  Weight: 50.5 kg

DRUGS (2)
  1. SEROQUEL [Suspect]
     Indication: DEPRESSION
     Dosage: 25-100 MG
     Route: 048
     Dates: start: 20031223
  2. DEPAKOTE [Concomitant]

REACTIONS (1)
  - TYPE 1 DIABETES MELLITUS [None]
